FAERS Safety Report 8555494-7 (Version None)
Quarter: 2012Q3

REPORT INFORMATION
  Report Type: 
  Country: None (occurrence: None)
  Receive Date: 20120731
  Receipt Date: 20111020
  Transmission Date: 20120928
  Serious: No
  Sender: FDA-Public Use
  Company Number: US-ASTRAZENECA-2011SE11069

PATIENT
  Age: 43 Year
  Sex: Female
  Weight: 72.6 kg

DRUGS (8)
  1. INTERFERON [Suspect]
     Route: 065
  2. TRAZODONE HCL [Concomitant]
  3. XANAX [Concomitant]
  4. SEROQUEL [Suspect]
     Indication: BIPOLAR DISORDER
     Route: 048
     Dates: start: 20040101
  5. SEROQUEL [Suspect]
     Route: 048
     Dates: end: 20050101
  6. SEROQUEL [Suspect]
     Route: 048
     Dates: start: 20080101
  7. SEROQUEL [Suspect]
     Route: 048
  8. SEROQUEL [Suspect]
     Route: 048
     Dates: start: 20090101, end: 20110801

REACTIONS (14)
  - PYREXIA [None]
  - SEDATION [None]
  - FATIGUE [None]
  - MOOD ALTERED [None]
  - ANXIETY [None]
  - FEELING ABNORMAL [None]
  - THERAPEUTIC RESPONSE UNEXPECTED [None]
  - INSOMNIA [None]
  - MANIA [None]
  - MALAISE [None]
  - IRRITABILITY [None]
  - BIPOLAR DISORDER [None]
  - SOMNOLENCE [None]
  - DRUG DOSE OMISSION [None]
